FAERS Safety Report 6294664-8 (Version None)
Quarter: 2009Q3

REPORT INFORMATION
  Report Type: 
  Country: None (occurrence: None)
  Receive Date: 20090803
  Receipt Date: 20090727
  Transmission Date: 20100115
  Serious: Yes (Congenital Anomaly)
  Sender: FDA-Public Use
  Company Number: A0680592A

PATIENT
  Sex: Female
  Weight: 2.9 kg

DRUGS (5)
  1. PAXIL [Suspect]
     Dosage: 20MG PER DAY
  2. PAROXETINE [Suspect]
     Indication: ANXIETY
     Dosage: 20MG PER DAY
     Dates: start: 20060101, end: 20070101
  3. VITAMIN TAB [Concomitant]
  4. ZOLOFT [Concomitant]
     Dates: start: 20060609
  5. TYLENOL (CAPLET) [Concomitant]

REACTIONS (3)
  - CARDIAC MURMUR [None]
  - CONGENITAL ANOMALY [None]
  - DRUG EXPOSURE DURING PREGNANCY [None]
